FAERS Safety Report 5043528-6 (Version None)
Quarter: 2006Q2

REPORT INFORMATION
  Report Type: 
  Country: None (occurrence: None)
  Receive Date: 20060601
  Receipt Date: 20060113
  Transmission Date: 20061013
  Serious: No
  Sender: FDA-Public Use
  Company Number: 2006PV007054

PATIENT
  Age: 56 Year
  Sex: Female
  Weight: 68.0396 kg

DRUGS (3)
  1. BYETTA [Suspect]
     Indication: DIABETES MELLITUS NON-INSULIN-DEPENDENT
     Dosage: SEE IMAGE
     Route: 058
     Dates: start: 20051001, end: 20050101
  2. BYETTA [Suspect]
     Indication: DIABETES MELLITUS NON-INSULIN-DEPENDENT
     Dosage: SEE IMAGE
     Route: 058
     Dates: start: 20050101
  3. GLYBURIDE AND METFORMIN HCL [Concomitant]

REACTIONS (7)
  - BLOOD GLUCOSE ABNORMAL [None]
  - BLOOD GLUCOSE DECREASED [None]
  - ERUCTATION [None]
  - MALAISE [None]
  - NAUSEA [None]
  - VOMITING [None]
  - WEIGHT DECREASED [None]
